FAERS Safety Report 5748736-4 (Version None)
Quarter: 2008Q2

REPORT INFORMATION
  Report Type: 
  Country: None (occurrence: None)
  Receive Date: 20080522
  Receipt Date: 20080512
  Transmission Date: 20081010
  Serious: Yes (Other)
  Sender: FDA-Public Use
  Company Number: 2008US001343

PATIENT
  Sex: Female

DRUGS (2)
  1. PROTOPIC [Suspect]
     Indication: ECZEMA
     Dates: start: 20030101
  2. ELIDEL [Suspect]
     Indication: ECZEMA
     Dates: start: 20030101

REACTIONS (1)
  - HODGKIN'S DISEASE [None]
